FAERS Safety Report 9417786 (Version 4)
Quarter: 2014Q4

REPORT INFORMATION
  Report Type: Report from Study
  Country: JP (occurrence: JP)
  Receive Date: 20130724
  Receipt Date: 20141222
  Transmission Date: 20150529
  Serious: Yes (Other)
  Sender: FDA-Public Use
  Company Number: JP-GLAXOSMITHKLINE-B0909340A

PATIENT
  Age: 31 Year
  Sex: Male
  Weight: 59 kg

DRUGS (83)
  1. NELARABINE [Suspect]
     Active Substance: NELARABINE
     Dosage: 1500 MG/M2, UNK
     Route: 042
     Dates: start: 20100611, end: 20100611
  2. NELARABINE [Suspect]
     Active Substance: NELARABINE
     Dosage: 1500 MG/M2, UNK
     Route: 042
     Dates: start: 20100719, end: 20100719
  3. DECADRON [Concomitant]
     Active Substance: DEXAMETHASONE
     Dosage: 20 MG, UNK
     Dates: start: 20100616, end: 20100617
  4. DECADRON [Concomitant]
     Active Substance: DEXAMETHASONE
     Dosage: 10 MG, UNK
     Dates: start: 20100705, end: 20100705
  5. DECADRON [Concomitant]
     Active Substance: DEXAMETHASONE
     Dosage: 10 MG, UNK
     Dates: start: 20100716, end: 20100716
  6. DECADRON [Concomitant]
     Active Substance: DEXAMETHASONE
     Dosage: 10 MG, UNK
     Dates: start: 20100803, end: 20100803
  7. GRANISETRON [Concomitant]
     Active Substance: GRANISETRON
     Dosage: UNK, QOD
     Route: 042
     Dates: start: 20100520, end: 20100520
  8. FUROSEMIDE. [Concomitant]
     Active Substance: FUROSEMIDE
     Dosage: UNK, QOD
     Route: 042
     Dates: start: 20100520, end: 20100520
  9. FUROSEMIDE. [Concomitant]
     Active Substance: FUROSEMIDE
     Dosage: UNK
     Route: 042
     Dates: start: 20100719, end: 20100719
  10. FUROSEMIDE. [Concomitant]
     Active Substance: FUROSEMIDE
     Dosage: UNK
     Route: 048
     Dates: start: 20100521, end: 20100810
  11. NELARABINE [Suspect]
     Active Substance: NELARABINE
     Dosage: 1500 MG/M2, UNK
     Route: 042
     Dates: start: 20100520, end: 20100520
  12. NELARABINE [Suspect]
     Active Substance: NELARABINE
     Dosage: 1500 MG/M2, UNK
     Route: 042
     Dates: start: 20100624, end: 20100624
  13. NELARABINE [Suspect]
     Active Substance: NELARABINE
     Dosage: 1500 MG/M2, UNK
     Route: 042
     Dates: start: 20100702, end: 20100702
  14. NELARABINE [Suspect]
     Active Substance: NELARABINE
     Dosage: 1500 MG/M2, UNK
     Route: 042
     Dates: start: 20100809, end: 20100809
  15. DECADRON [Concomitant]
     Active Substance: DEXAMETHASONE
     Dosage: 10 MG, UNK
     Dates: start: 20100809, end: 20100809
  16. GRANISETRON [Concomitant]
     Active Substance: GRANISETRON
     Dosage: UNK
     Route: 042
     Dates: start: 20100609, end: 20100609
  17. GRANISETRON [Concomitant]
     Active Substance: GRANISETRON
     Dosage: UNK, QOD
     Route: 042
     Dates: start: 20100624, end: 20100624
  18. MEYLON [Concomitant]
     Active Substance: SODIUM BICARBONATE
     Dosage: UNK, QOD
     Route: 042
     Dates: start: 20100522, end: 20100522
  19. FUROSEMIDE. [Concomitant]
     Active Substance: FUROSEMIDE
     Dosage: UNK, QOD
     Route: 042
     Dates: start: 20100522, end: 20100522
  20. FUROSEMIDE. [Concomitant]
     Active Substance: FUROSEMIDE
     Dosage: UNK
     Route: 042
     Dates: start: 20100702, end: 20100702
  21. FUROSEMIDE. [Concomitant]
     Active Substance: FUROSEMIDE
     Dosage: UNK
     Route: 042
     Dates: start: 20100721, end: 20100721
  22. ZYLORIC [Concomitant]
     Active Substance: ALLOPURINOL
     Indication: PROPHYLAXIS
     Dosage: UNK
     Route: 048
     Dates: start: 20100518, end: 20100810
  23. DECADRON [Concomitant]
     Active Substance: DEXAMETHASONE
     Dosage: 20 MG, UNK
     Dates: start: 20100628, end: 20100628
  24. DECADRON [Concomitant]
     Active Substance: DEXAMETHASONE
     Dosage: 10 MG, UNK
     Dates: start: 20100629, end: 20100629
  25. GRANISETRON [Concomitant]
     Active Substance: GRANISETRON
     Dosage: UNK, QOD
     Route: 042
     Dates: start: 20100809, end: 20100809
  26. GRANISETRON [Concomitant]
     Active Substance: GRANISETRON
     Dosage: UNK, QOD
     Route: 042
     Dates: start: 20100723, end: 20100723
  27. MEYLON [Concomitant]
     Active Substance: SODIUM BICARBONATE
     Indication: PROPHYLAXIS
     Dosage: UNK, QOD
     Route: 042
     Dates: start: 20100516, end: 20100516
  28. MEYLON [Concomitant]
     Active Substance: SODIUM BICARBONATE
     Dosage: UNK, QOD
     Route: 042
     Dates: start: 20100520, end: 20100520
  29. MEYLON [Concomitant]
     Active Substance: SODIUM BICARBONATE
     Dosage: UNK, QOD
     Route: 042
     Dates: start: 20100607, end: 20100607
  30. MEYLON [Concomitant]
     Active Substance: SODIUM BICARBONATE
     Dosage: UNK, QOD
     Route: 042
     Dates: start: 20100809, end: 20100809
  31. FUROSEMIDE. [Concomitant]
     Active Substance: FUROSEMIDE
     Dosage: UNK, QOD
     Route: 042
     Dates: start: 20100607, end: 20100607
  32. PARIET [Concomitant]
     Active Substance: RABEPRAZOLE SODIUM
     Indication: PROPHYLAXIS
     Dosage: UNK
     Route: 048
     Dates: start: 20100518, end: 20100810
  33. BAKTAR [Concomitant]
     Active Substance: SULFAMETHOXAZOLE\TRIMETHOPRIM
     Indication: PROPHYLAXIS
     Dosage: UNK
     Route: 048
     Dates: start: 20100518, end: 20100810
  34. ALDACTONE [Concomitant]
     Active Substance: SPIRONOLACTONE
     Dosage: UNK
     Route: 048
     Dates: start: 20100518, end: 20100810
  35. ITRIZOLE [Concomitant]
     Active Substance: ITRACONAZOLE
     Indication: PROPHYLAXIS
     Dosage: UNK
     Route: 048
     Dates: start: 20100521, end: 20100810
  36. NELARABINE [Suspect]
     Active Substance: NELARABINE
     Dosage: 1500 MG/M2, UNK
     Route: 042
     Dates: start: 20100609, end: 20100609
  37. NELARABINE [Suspect]
     Active Substance: NELARABINE
     Dosage: 1500 MG/M2, UNK
     Route: 042
     Dates: start: 20100630, end: 20100630
  38. NELARABINE [Suspect]
     Active Substance: NELARABINE
     Dosage: 1500 MG/M2, UNK
     Route: 042
     Dates: start: 20100723, end: 20100723
  39. CYTARABINE. [Concomitant]
     Active Substance: CYTARABINE
     Indication: NEOPLASM MALIGNANT
     Dosage: UNK
     Dates: start: 20100504, end: 20100506
  40. DECADRON [Concomitant]
     Active Substance: DEXAMETHASONE
     Dosage: 40 MG, UNK
     Dates: start: 20100602, end: 20100604
  41. DECADRON [Concomitant]
     Active Substance: DEXAMETHASONE
     Dosage: 20 MG, UNK
     Dates: start: 20100605, end: 20100606
  42. DECADRON [Concomitant]
     Active Substance: DEXAMETHASONE
     Dosage: 20 MG, UNK
     Dates: start: 20100611, end: 20100612
  43. FUROSEMIDE. [Concomitant]
     Active Substance: FUROSEMIDE
     Dosage: UNK
     Route: 042
     Dates: start: 20100723, end: 20100723
  44. LACB R [Concomitant]
     Indication: PROPHYLAXIS
     Dosage: UNK
     Route: 048
     Dates: start: 20100518, end: 20100810
  45. AVELOX [Concomitant]
     Active Substance: MOXIFLOXACIN HYDROCHLORIDE
     Dosage: UNK
     Route: 048
     Dates: start: 20100528, end: 20100530
  46. NELARABINE [Suspect]
     Active Substance: NELARABINE
     Dosage: 1500 MG/M2, UNK
     Route: 042
     Dates: start: 20100607, end: 20100607
  47. NELARABINE [Suspect]
     Active Substance: NELARABINE
     Dosage: 1500 MG/M2, UNK
     Route: 042
     Dates: start: 20100721, end: 20100721
  48. DECADRON [Concomitant]
     Active Substance: DEXAMETHASONE
     Dosage: 10 MG, UNK
     Dates: start: 20100607, end: 20100607
  49. DECADRON [Concomitant]
     Active Substance: DEXAMETHASONE
     Dosage: 10 MG, UNK
     Dates: start: 20100618, end: 20100619
  50. GRANISETRON [Concomitant]
     Active Substance: GRANISETRON
     Dosage: UNK, QOD
     Route: 042
     Dates: start: 20100719, end: 20100719
  51. FUROSEMIDE. [Concomitant]
     Active Substance: FUROSEMIDE
     Dosage: UNK
     Route: 042
     Dates: start: 20100809, end: 20100809
  52. ULCERLMIN [Concomitant]
     Active Substance: SUCRALFATE
     Indication: PROPHYLAXIS
     Dosage: UNK
     Route: 048
     Dates: start: 20100518, end: 20100610
  53. NELARABINE [Suspect]
     Active Substance: NELARABINE
     Indication: PRECURSOR T-LYMPHOBLASTIC LYMPHOMA/LEUKAEMIA
     Dosage: 1500 MG/M2, UNK
     Route: 042
     Dates: start: 20100516, end: 20100516
  54. NELARABINE [Suspect]
     Active Substance: NELARABINE
     Dosage: 1500 MG/M2, QOD
     Route: 042
     Dates: start: 20100812, end: 20100814
  55. DECADRON [Concomitant]
     Active Substance: DEXAMETHASONE
     Dosage: 10 MG, UNK
     Dates: start: 20100710, end: 20100710
  56. GRANISETRON [Concomitant]
     Active Substance: GRANISETRON
     Dosage: UNK, QOD
     Route: 042
     Dates: start: 20100607, end: 20100607
  57. GRANISETRON [Concomitant]
     Active Substance: GRANISETRON
     Dosage: UNK, QOD
     Route: 042
     Dates: start: 20100630, end: 20100630
  58. GRANISETRON [Concomitant]
     Active Substance: GRANISETRON
     Dosage: UNK, QOD
     Route: 042
     Dates: start: 20100702, end: 20100702
  59. GRANISETRON [Concomitant]
     Active Substance: GRANISETRON
     Dosage: UNK, QOD
     Route: 042
     Dates: start: 20100721, end: 20100721
  60. MEYLON [Concomitant]
     Active Substance: SODIUM BICARBONATE
     Dosage: UNK, QOD
     Route: 042
     Dates: start: 20100723, end: 20100723
  61. FUROSEMIDE. [Concomitant]
     Active Substance: FUROSEMIDE
     Dosage: UNK
     Route: 042
     Dates: start: 20100609, end: 20100609
  62. FUROSEMIDE. [Concomitant]
     Active Substance: FUROSEMIDE
     Dosage: UNK
     Route: 042
     Dates: start: 20100611, end: 20100611
  63. BONALON [Concomitant]
     Active Substance: ALENDRONATE SODIUM
     Indication: PROPHYLAXIS
     Dosage: UNK
     Route: 048
     Dates: start: 20100714, end: 20100810
  64. NELARABINE [Suspect]
     Active Substance: NELARABINE
     Dosage: 1500 MG/M2, UNK
     Route: 042
     Dates: start: 20100522, end: 20100522
  65. PREDNISOLONE. [Concomitant]
     Active Substance: PREDNISOLONE
     Indication: NEOPLASM MALIGNANT
     Dosage: 20 MG, UNK
     Route: 048
     Dates: start: 20100703, end: 20100810
  66. DECADRON [Concomitant]
     Active Substance: DEXAMETHASONE
     Indication: NEOPLASM MALIGNANT
     Dosage: 10 MG, UNK
     Dates: start: 20100521, end: 20100522
  67. GRANISETRON [Concomitant]
     Active Substance: GRANISETRON
     Dosage: UNK, QOD
     Route: 042
     Dates: start: 20100522, end: 20100522
  68. MEYLON [Concomitant]
     Active Substance: SODIUM BICARBONATE
     Dosage: UNK, QOD
     Route: 042
     Dates: start: 20100609, end: 20100609
  69. MEYLON [Concomitant]
     Active Substance: SODIUM BICARBONATE
     Dosage: UNK, QOD
     Route: 042
     Dates: start: 20100702, end: 20100702
  70. FUROSEMIDE. [Concomitant]
     Active Substance: FUROSEMIDE
     Indication: PROPHYLAXIS
     Dosage: UNK, QOD
     Route: 042
     Dates: start: 20100516, end: 20100516
  71. FUROSEMIDE. [Concomitant]
     Active Substance: FUROSEMIDE
     Dosage: UNK
     Route: 042
     Dates: start: 20100624, end: 20100624
  72. MEROPEN [Concomitant]
     Active Substance: MEROPENEM
     Dosage: UNK
     Route: 042
     Dates: start: 20100518, end: 20100920
  73. GASLON N OD [Concomitant]
     Indication: PROPHYLAXIS
     Dosage: UNK
     Route: 048
     Dates: start: 20100518, end: 20100810
  74. GRANISETRON [Concomitant]
     Active Substance: GRANISETRON
     Indication: PROPHYLAXIS
     Dosage: UNK, QOD
     Route: 042
     Dates: start: 20100516, end: 20100516
  75. GRANISETRON [Concomitant]
     Active Substance: GRANISETRON
     Dosage: UNK, QOD
     Route: 042
     Dates: start: 20100611, end: 20100611
  76. MEYLON [Concomitant]
     Active Substance: SODIUM BICARBONATE
     Dosage: UNK, QOD
     Route: 042
     Dates: start: 20100611, end: 20100611
  77. MEYLON [Concomitant]
     Active Substance: SODIUM BICARBONATE
     Dosage: UNK, QOD
     Route: 042
     Dates: start: 20100624, end: 20100624
  78. MEYLON [Concomitant]
     Active Substance: SODIUM BICARBONATE
     Dosage: UNK, QOD
     Route: 042
     Dates: start: 20100630, end: 20100630
  79. MEYLON [Concomitant]
     Active Substance: SODIUM BICARBONATE
     Dosage: UNK, QOD
     Route: 042
     Dates: start: 20100719, end: 20100719
  80. MEYLON [Concomitant]
     Active Substance: SODIUM BICARBONATE
     Dosage: UNK, QOD
     Route: 042
     Dates: start: 20100721, end: 20100721
  81. FUROSEMIDE. [Concomitant]
     Active Substance: FUROSEMIDE
     Dosage: UNK
     Route: 042
     Dates: start: 20100630, end: 20100630
  82. MAGMITT [Concomitant]
     Active Substance: MAGNESIUM OXIDE
     Indication: PROPHYLAXIS
     Dosage: UNK
     Route: 048
     Dates: start: 20100518, end: 20100810
  83. SENNOSIDE [Concomitant]
     Active Substance: SENNOSIDES
     Indication: PROPHYLAXIS
     Dosage: UNK
     Route: 048
     Dates: start: 20100518, end: 20100810

REACTIONS (11)
  - Neuropathy peripheral [Unknown]
  - Myelopathy [Unknown]
  - Hypoaesthesia [Unknown]
  - Fall [Unknown]
  - Fungal skin infection [Unknown]
  - Sensory loss [Unknown]
  - Abasia [Unknown]
  - Muscular weakness [Unknown]
  - Gait disturbance [Unknown]
  - Cystitis [Unknown]
  - Somnolence [Recovered/Resolved]

NARRATIVE: CASE EVENT DATE: 20100519
